FAERS Safety Report 18224385 (Version 2)
Quarter: 2022Q4

REPORT INFORMATION
  Report Type: Spontaneous
  Country: DE (occurrence: DE)
  Receive Date: 20200902
  Receipt Date: 20221124
  Transmission Date: 20230112
  Serious: Yes (Hospitalization)
  Sender: FDA-Public Use
  Company Number: DE-ADRED-05149-01

PATIENT
  Age: 90 Year
  Sex: Female

DRUGS (7)
  1. HYDROMORPHONE HYDROCHLORIDE [Suspect]
     Active Substance: HYDROMORPHONE HYDROCHLORIDE
     Indication: Product used for unknown indication
     Dosage: 4 MG, TID (4 MG, 1-0-1-1, RETARDKAPSELN)
     Route: 048
  2. ZOPICLONE [Concomitant]
     Active Substance: ZOPICLONE
     Indication: Product used for unknown indication
     Dosage: 7.5 MG, DAILY (7.5 MG, 0-0-1-0, TABLETTEN)
  3. TELMISARTAN [Concomitant]
     Active Substance: TELMISARTAN
     Indication: Product used for unknown indication
     Dosage: 40 MG, BID (40 MG, 1-0-1-0)
     Route: 048
  4. TELMISARTAN [Concomitant]
     Active Substance: TELMISARTAN
     Dosage: 40 MG, (40 MG, 1-0-1-0)
  5. METAMIZOL                          /06276702/ [Concomitant]
     Dosage: 40 GTT, QID (40 GTT, 1-1-1-1, TROPFEN)
     Route: 048
  6. BUDESONIDE [Concomitant]
     Active Substance: BUDESONIDE
     Indication: Product used for unknown indication
     Dosage: 3 MG, TID (3 MG, 1-1-1-0)
  7. METAMIZOL [Concomitant]
     Active Substance: METAMIZOLE SODIUM
     Indication: Product used for unknown indication
     Dosage: 40 GTT, QID (40 GTT, 1-1-1-1, TROPFEN)

REACTIONS (5)
  - Fracture [Unknown]
  - Fall [Unknown]
  - Back pain [Unknown]
  - Abdominal pain [Unknown]
  - Constipation [Unknown]
